FAERS Safety Report 4371223-5 (Version None)
Quarter: 2004Q2

REPORT INFORMATION
  Report Type: 
  Country: None (occurrence: None)
  Receive Date: 20040604
  Receipt Date: 20040527
  Transmission Date: 20050107
  Serious: Yes (Other)
  Sender: FDA-Public Use
  Company Number: PHEH2004US06020

PATIENT
  Age: 73 Year
  Sex: Female

DRUGS (6)
  1. MIACALCIN [Suspect]
     Dates: start: 20040527, end: 20040527
  2. PULMICORT [Concomitant]
  3. MAXAIR [Concomitant]
  4. NASACORT [Concomitant]
  5. ASTELIN [Concomitant]
  6. VIOXX [Concomitant]

REACTIONS (6)
  - CHILLS [None]
  - DIZZINESS [None]
  - HYPERTENSION [None]
  - NAUSEA [None]
  - STOMACH DISCOMFORT [None]
  - VOMITING [None]
